FAERS Safety Report 13987871 (Version 6)
Quarter: 2017Q4

REPORT INFORMATION
  Report Type: Spontaneous
  Country: JP (occurrence: JP)
  Receive Date: 20170919
  Receipt Date: 20171106
  Transmission Date: 20180321
  Serious: Yes (Life-Threatening, Hospitalization)
  Sender: FDA-Public Use
  Company Number: JP-NOVOPROD-562929

PATIENT
  Sex: Female
  Weight: 2.8 kg

DRUGS (2)
  1. NOVORAPID [Suspect]
     Active Substance: INSULIN ASPART
     Indication: TYPE 1 DIABETES MELLITUS
     Dosage: 17.975 U, QD
     Route: 064
     Dates: start: 20170209
  2. TRESIBA CHU [Suspect]
     Active Substance: INSULIN DEGLUDEC
     Indication: TYPE 1 DIABETES MELLITUS
     Dosage: 26 U, QD
     Route: 064
     Dates: start: 20170209, end: 20170305

REACTIONS (2)
  - Foetal exposure during pregnancy [Recovered/Resolved]
  - Foetal non-stress test abnormal [Recovered/Resolved]

NARRATIVE: CASE EVENT DATE: 20170907
